FAERS Safety Report 7728239-8 (Version None)
Quarter: 2011Q3

REPORT INFORMATION
  Report Type: 
  Country: None (occurrence: None)
  Receive Date: 20110905
  Receipt Date: 20110826
  Transmission Date: 20111222
  Serious: Yes (Other)
  Sender: FDA-Public Use
  Company Number: PHEH2009US12471

PATIENT
  Sex: Female

DRUGS (24)
  1. CARBOPLATIN [Concomitant]
  2. GEMZAR [Concomitant]
  3. NEURONTIN [Concomitant]
     Dosage: 1 DF, PRN
     Route: 048
  4. CYTOXAN [Concomitant]
  5. METHOTREXATE [Concomitant]
  6. RALOXIFENE HCL [Concomitant]
  7. AREDIA [Suspect]
     Dosage: 30 MG, UNK
  8. VERSED [Concomitant]
  9. AREDIA [Suspect]
     Dosage: 90 MG, QMO
     Route: 042
     Dates: start: 20000124
  10. BENADRYL [Concomitant]
     Dosage: 1 DF, QHS PRN
     Route: 048
  11. WELLBUTRIN [Concomitant]
  12. DEMEROL [Concomitant]
     Route: 030
  13. NAPROSYN [Concomitant]
  14. FENTANYL-100 [Concomitant]
  15. ACYCLOVIR [Concomitant]
  16. DEXAMETHASONE SODIUM PHOSPHATE [Concomitant]
     Dosage: 2 DRP, BID PRN
  17. HYDROCHLOROTHIAZIDE [Concomitant]
  18. FASLODEX [Concomitant]
     Dates: start: 20021001
  19. LORAZEPAM [Concomitant]
  20. ZOMETA [Suspect]
  21. OXYCODONE HCL [Concomitant]
  22. PROCHLORPERAZINE MALEATE [Concomitant]
     Dosage: 1 DF, PRN
     Route: 048
  23. ZOFRAN [Concomitant]
     Route: 042
  24. FLUOROURACIL [Concomitant]

REACTIONS (40)
  - OSTEONECROSIS OF JAW [None]
  - DIVERTICULUM [None]
  - DUODENOGASTRIC REFLUX [None]
  - HERPES ZOSTER [None]
  - CANDIDIASIS [None]
  - PAIN [None]
  - ROAD TRAFFIC ACCIDENT [None]
  - OSTEOPOROSIS [None]
  - EYE SWELLING [None]
  - HYPERMETABOLISM [None]
  - ARTHRALGIA [None]
  - ECZEMA [None]
  - METASTASES TO PELVIS [None]
  - ESSENTIAL HYPERTENSION [None]
  - EYE ALLERGY [None]
  - CELLULITIS [None]
  - DEFORMITY [None]
  - BACK PAIN [None]
  - NEOPLASM MALIGNANT [None]
  - INFECTION [None]
  - METASTASES TO SPINE [None]
  - METASTASES TO BONE [None]
  - HAEMATOCHEZIA [None]
  - FLANK PAIN [None]
  - CORONARY ARTERY DISEASE [None]
  - PHYSICAL DISABILITY [None]
  - HEPATIC CYST [None]
  - RENAL CYST [None]
  - HAEMORRHOIDS [None]
  - GENERAL PHYSICAL HEALTH DETERIORATION [None]
  - NEOPLASM PROGRESSION [None]
  - OSTEOLYSIS [None]
  - ANXIETY [None]
  - EMOTIONAL DISTRESS [None]
  - SPINAL OSTEOARTHRITIS [None]
  - METASTASES TO LUNG [None]
  - BONE PAIN [None]
  - NASAL ULCER [None]
  - ANAEMIA [None]
  - PAIN IN EXTREMITY [None]
